FAERS Safety Report 20889958 (Version 1)
Quarter: 2022Q2

REPORT INFORMATION
  Report Type: Report from Study
  Country: EG (occurrence: EG)
  Receive Date: 20220530
  Receipt Date: 20220530
  Transmission Date: 20220720
  Serious: Yes (Hospitalization, Other)
  Sender: FDA-Public Use
  Company Number: EG-NOVARTISPH-NVSC2022EG121516

PATIENT
  Age: 24 Year
  Sex: Female

DRUGS (12)
  1. GILENYA [Suspect]
     Active Substance: FINGOLIMOD HYDROCHLORIDE
     Indication: Multiple sclerosis
     Dosage: 1 DOSAGE FORM, QD
     Route: 065
     Dates: start: 201503, end: 202103
  2. GILENYA [Suspect]
     Active Substance: FINGOLIMOD HYDROCHLORIDE
     Dosage: 1 DOSAGE FORM, QOD
     Route: 065
     Dates: start: 202103
  3. CALCIUM\VITAMIN D [Concomitant]
     Active Substance: CALCIUM\VITAMIN D
     Indication: Mineral supplementation
     Dosage: 1 DOSAGE FORM, QD
     Route: 048
     Dates: start: 202109
  4. CAL-MAG [Concomitant]
     Indication: Mineral supplementation
     Dosage: 1 DOSAGE FORM, BID
     Route: 048
     Dates: start: 202109
  5. OSTEOCARE [Concomitant]
     Active Substance: CALCIUM\CHOLECALCIFEROL\MAGNESIUM\ZINC
     Indication: Mineral supplementation
     Dosage: 1 DOSAGE FORM, TID
     Route: 048
     Dates: start: 202108
  6. OMEGA 3 PLUS [Concomitant]
     Indication: Vitamin supplementation
     Dosage: 1 DOSAGE FORM, TID
     Route: 048
     Dates: start: 2021
  7. OMEGA 3 [Concomitant]
     Active Substance: CAPSAICIN
     Indication: Vitamin supplementation
     Dosage: UNK, (ONE AMP EVERY THREE MONTH)
     Route: 048
     Dates: start: 202111
  8. DEVIT [Concomitant]
     Indication: Product used for unknown indication
     Dosage: 1 DOSAGE FORM, QD
     Route: 048
     Dates: start: 202111
  9. NEUROTONE [Concomitant]
     Indication: Nerve injury
     Dosage: UNK, (THREE AMP PER WEEK)
     Route: 065
     Dates: start: 2015
  10. LIVABION [Concomitant]
     Indication: Nerve injury
     Dosage: UNK, (THREE AMP PER WEEK)
     Route: 048
     Dates: start: 202205
  11. ALPRAZOLAM [Concomitant]
     Active Substance: ALPRAZOLAM
     Indication: Drug therapy enhancement
     Dosage: 1 DOSAGE FORM, QD, (0.25)
     Route: 048
     Dates: start: 202201
  12. ALPRAZOLAM [Concomitant]
     Active Substance: ALPRAZOLAM
     Indication: Antidepressant therapy
     Dosage: 1 DOSAGE FORM, QD
     Route: 065
     Dates: start: 202203

REACTIONS (6)
  - Movement disorder [Not Recovered/Not Resolved]
  - Osteoporosis [Not Recovered/Not Resolved]
  - Calcium deficiency [Unknown]
  - White blood cell count increased [Unknown]
  - Hepatic enzyme increased [Recovering/Resolving]
  - Vomiting [Recovering/Resolving]

NARRATIVE: CASE EVENT DATE: 20201010
